FAERS Safety Report 16277495 (Version 4)
Quarter: 2019Q2

REPORT INFORMATION
  Report Type: Report from Study
  Country: ES (occurrence: ES)
  Receive Date: 20190506
  Receipt Date: 20190523
  Transmission Date: 20190711
  Serious: Yes (Hospitalization, Other)
  Sender: FDA-Public Use
  Company Number: ES-BRISTOL-MYERS SQUIBB COMPANY-BMS-2019-038584

PATIENT
  Age: 72 Year
  Sex: Male

DRUGS (4)
  1. URSOBILANE [Concomitant]
     Indication: HEPATIC FAILURE
     Dosage: 900 MILLIGRAM, Q8H
     Route: 048
     Dates: start: 20190328, end: 20190429
  2. NIVOLUMAB [Suspect]
     Active Substance: NIVOLUMAB
     Indication: HEPATOCELLULAR CARCINOMA
     Dosage: 240 MILLIGRAM, Q2WK
     Route: 042
     Dates: start: 20190205, end: 20190403
  3. PARACETAMOL [Concomitant]
     Active Substance: ACETAMINOPHEN
     Indication: PAIN
     Dosage: 1 GRAM, Q6H
     Route: 048
  4. PREDNISONA [Concomitant]
     Active Substance: PREDNISONE
     Indication: HEPATIC FAILURE
     Dosage: 10 MILLIGRAM, QD
     Route: 048
     Dates: start: 20190418, end: 20190426

REACTIONS (4)
  - Hepatic failure [Recovered/Resolved]
  - Bile duct obstruction [Not Recovered/Not Resolved]
  - Anal abscess [Recovered/Resolved]
  - Blood bilirubin increased [Recovered/Resolved]

NARRATIVE: CASE EVENT DATE: 20190320
